FAERS Safety Report 22796352 (Version 3)
Quarter: 2023Q4

REPORT INFORMATION
  Report Type: Report from Study
  Country: BE (occurrence: BE)
  Receive Date: 20230808
  Receipt Date: 20231018
  Transmission Date: 20240110
  Serious: Yes (Hospitalization)
  Sender: FDA-Public Use
  Company Number: BE-002147023-NVSC2023BE157995

PATIENT
  Age: 50 Year
  Sex: Female
  Weight: 49 kg

DRUGS (8)
  1. FLUOROURACIL [Suspect]
     Active Substance: FLUOROURACIL
     Indication: Colorectal cancer metastatic
     Dosage: 3624 MG
     Route: 042
     Dates: start: 20230510
  2. FLUOROURACIL [Suspect]
     Active Substance: FLUOROURACIL
     Dosage: 604 MG
     Route: 042
     Dates: start: 20230510
  3. BEVACIZUMAB [Suspect]
     Active Substance: BEVACIZUMAB
     Indication: Colorectal cancer metastatic
     Dosage: 245 MG
     Route: 042
     Dates: start: 20230510
  4. IRINOTECAN [Suspect]
     Active Substance: IRINOTECAN
     Indication: Product used for unknown indication
     Dosage: 272 MG
     Route: 042
     Dates: start: 20230510
  5. LEVOLEUCOVORIN [Suspect]
     Active Substance: LEVOLEUCOVORIN
     Indication: Product used for unknown indication
     Dosage: 302 MG, Q2W
     Route: 042
     Dates: start: 20230510
  6. TISLELIZUMAB [Suspect]
     Active Substance: TISLELIZUMAB
     Indication: Colorectal cancer metastatic
     Dosage: 300 MG, Q4W
     Route: 042
     Dates: start: 20230510, end: 20230717
  7. MOMETASONE FUROATE [Concomitant]
     Active Substance: MOMETASONE FUROATE
     Indication: Rash maculo-papular
     Dosage: UNK
     Route: 065
     Dates: start: 20230717, end: 20230719
  8. MEDROL [Concomitant]
     Active Substance: METHYLPREDNISOLONE
     Indication: Hypertension
     Dosage: UNK
     Route: 065
     Dates: start: 20230719, end: 20230727

REACTIONS (2)
  - Thyroiditis [Not Recovered/Not Resolved]
  - Hyperthyroidism [Not Recovered/Not Resolved]

NARRATIVE: CASE EVENT DATE: 20230717
